FAERS Safety Report 23810591 (Version 2)
Quarter: 2024Q2

REPORT INFORMATION
  Report Type: Report from Study
  Country: US (occurrence: US)
  Receive Date: 20240502
  Receipt Date: 20240527
  Transmission Date: 20240716
  Serious: No
  Sender: FDA-Public Use
  Company Number: US-GLAXOSMITHKLINE-US2024GSK056042

PATIENT

DRUGS (1)
  1. BUPROPION HYDROCHLORIDE [Suspect]
     Active Substance: BUPROPION HYDROCHLORIDE
     Indication: Depression
     Dosage: UNK
     Dates: start: 2009, end: 2013

REACTIONS (14)
  - Stress [Not Recovered/Not Resolved]
  - Acne [Not Recovered/Not Resolved]
  - Disease recurrence [Not Recovered/Not Resolved]
  - Hair disorder [Unknown]
  - Arthropathy [Unknown]
  - Pain [Not Recovered/Not Resolved]
  - Fibromyalgia [Unknown]
  - Angiopathy [Unknown]
  - Urticaria chronic [Unknown]
  - Allergic reaction to excipient [Unknown]
  - Inability to afford medication [Unknown]
  - Insurance issue [Unknown]
  - Therapeutic response unexpected [Unknown]
  - Product substitution issue [Unknown]
